FAERS Safety Report 9943853 (Version 2)
Quarter: 2014Q1

REPORT INFORMATION
  Report Type: Spontaneous
  Country: US (occurrence: US)
  Receive Date: 20140303
  Receipt Date: 20140303
  Transmission Date: 20141002
  Serious: No
  Sender: FDA-Public Use
  Company Number: US-ABBVIE-13P-163-1034725-00

PATIENT
  Age: 52 Year
  Sex: Female

DRUGS (1)
  1. HUMIRA [Suspect]
     Indication: PSORIASIS
     Route: 058
     Dates: start: 201103, end: 20120919

REACTIONS (3)
  - Neuropathy peripheral [Unknown]
  - Paraesthesia [Recovering/Resolving]
  - Paraesthesia [Recovering/Resolving]
